FAERS Safety Report 14987457 (Version 1)
Quarter: 2018Q2

REPORT INFORMATION
  Report Type: Report from Study
  Country: ES (occurrence: ES)
  Receive Date: 20180608
  Receipt Date: 20180608
  Transmission Date: 20180711
  Serious: Yes (Life-Threatening)
  Sender: FDA-Public Use
  Company Number: ES-ROCHE-2135538

PATIENT
  Age: 8 Year
  Sex: Male

DRUGS (4)
  1. ETOPOSIDE. [Suspect]
     Active Substance: ETOPOSIDE
     Indication: BURKITT^S LYMPHOMA
     Dosage: THE DOSE RECIVED BEFORE THE EVENT ONSET WAS 900 MG
     Route: 042
     Dates: start: 20141008, end: 20141012
  2. CYTARABINE. [Suspect]
     Active Substance: CYTARABINE
     Indication: BURKITT^S LYMPHOMA
     Dosage: C DOSE RECEIVED BEFORE EVENT ONSET WAS 16750 MG
     Route: 042
     Dates: start: 20141008, end: 20141012
  3. CYTARABINE. [Suspect]
     Active Substance: CYTARABINE
     Indication: BURKITT^S LYMPHOMA
     Dosage: THE DOSE RECEIVED BEFORE THE ONSET OF THE EVENT WAS 225 MG
     Route: 042
     Dates: start: 20141008, end: 20141012
  4. RITUXIMAB. [Suspect]
     Active Substance: RITUXIMAB
     Indication: BURKITT^S LYMPHOMA
     Dosage: THE DOSE RECEIVED BEFORE ONSET OF EVENT WAS 350 MG
     Route: 042
     Dates: start: 20141008, end: 20141012

REACTIONS (2)
  - Shock [Recovered/Resolved]
  - Colitis [Recovered/Resolved]

NARRATIVE: CASE EVENT DATE: 20141022
